FAERS Safety Report 13244458 (Version 1)
Quarter: 2017Q1

REPORT INFORMATION
  Report Type: Spontaneous
  Country: US (occurrence: US)
  Receive Date: 20170216
  Receipt Date: 20170216
  Transmission Date: 20170428
  Serious: No
  Sender: FDA-Public Use
  Company Number: US-JAZZ-2017-US-000264

PATIENT
  Sex: Female
  Weight: 61 kg

DRUGS (11)
  1. VALACYCLOVIR HCL [Concomitant]
     Active Substance: VALACYCLOVIR HYDROCHLORIDE
  2. VYVANSE [Concomitant]
     Active Substance: LISDEXAMFETAMINE DIMESYLATE
  3. EPIPEN [Concomitant]
     Active Substance: EPINEPHRINE
  4. CLONAZEPAM. [Concomitant]
     Active Substance: CLONAZEPAM
  5. LORAZEPAM A [Concomitant]
     Active Substance: LORAZEPAM
  6. SYNTHROID [Concomitant]
     Active Substance: LEVOTHYROXINE SODIUM
  7. XYREM [Suspect]
     Active Substance: SODIUM OXYBATE
     Indication: NARCOLEPSY
     Dosage: 2.25 G, BID
     Route: 048
     Dates: start: 20170106, end: 20170108
  8. XYREM [Suspect]
     Active Substance: SODIUM OXYBATE
     Indication: CATAPLEXY
  9. ESTRADIOL. [Concomitant]
     Active Substance: ESTRADIOL
  10. LAMICTAL [Concomitant]
     Active Substance: LAMOTRIGINE
  11. ZOLPIDEM [Concomitant]
     Active Substance: ZOLPIDEM\ZOLPIDEM TARTRATE

REACTIONS (2)
  - Hypersensitivity [Recovering/Resolving]
  - Irritable bowel syndrome [Not Recovered/Not Resolved]
